FAERS Safety Report 10094253 (Version 1)
Quarter: 2014Q2

REPORT INFORMATION
  Report Type: Spontaneous
  Country: US (occurrence: US)
  Receive Date: 20140422
  Receipt Date: 20140422
  Transmission Date: 20141212
  Serious: No
  Sender: FDA-Public Use
  Company Number: US-BAYER-2014-057621

PATIENT
  Age: 62 Year
  Sex: Female

DRUGS (12)
  1. BETASERON [Suspect]
     Dosage: 0.25 MG, QOD
     Route: 058
  2. KLONOPIN [Concomitant]
  3. ZOLOFT [Concomitant]
  4. TRICOR [Concomitant]
  5. SIMVASTATIN [Concomitant]
  6. LOVAZA [Concomitant]
  7. ASA [Concomitant]
  8. CALCIUM [Concomitant]
  9. STOOL SOFTENER [Concomitant]
  10. LORTAB [Concomitant]
  11. MAXZIDE [Concomitant]
  12. ALTACE [Concomitant]

REACTIONS (3)
  - Depression [Unknown]
  - Decreased interest [Unknown]
  - Drug hypersensitivity [Unknown]
